FAERS Safety Report 23164457 (Version 3)
Quarter: 2023Q4

REPORT INFORMATION
  Report Type: Spontaneous
  Country: FR (occurrence: FR)
  Receive Date: 20231109
  Receipt Date: 20231117
  Transmission Date: 20240110
  Serious: Yes (Hospitalization, Other)
  Sender: FDA-Public Use
  Company Number: FR-ADIENNEP-2023AD000531

PATIENT
  Age: 27 Year
  Sex: Female

DRUGS (12)
  1. EVEROLIMUS [Suspect]
     Active Substance: EVEROLIMUS
     Indication: Prophylaxis against graft versus host disease
     Dosage: UNK
     Route: 065
  2. FLUDARABINE PHOSPHATE [Suspect]
     Active Substance: FLUDARABINE PHOSPHATE
     Indication: Allogenic stem cell transplantation
     Dosage: UNK
     Route: 065
  3. FLUDARABINE PHOSPHATE [Suspect]
     Active Substance: FLUDARABINE PHOSPHATE
     Indication: Bone marrow conditioning regimen
  4. CYCLOPHOSPHAMIDE [Suspect]
     Active Substance: CYCLOPHOSPHAMIDE
     Indication: Prophylaxis against graft versus host disease
     Dosage: UNK
     Route: 065
  5. BUSULFAN [Suspect]
     Active Substance: BUSULFAN
     Indication: Allogenic stem cell transplantation
     Dosage: UNK
     Route: 065
  6. BUSULFAN [Suspect]
     Active Substance: BUSULFAN
     Indication: Bone marrow conditioning regimen
  7. THIOTEPA [Suspect]
     Active Substance: THIOTEPA
     Indication: Allogenic stem cell transplantation
     Dosage: UNK
     Route: 065
  8. THIOTEPA [Suspect]
     Active Substance: THIOTEPA
     Indication: Bone marrow conditioning regimen
  9. MITOXANTRONE [Suspect]
     Active Substance: MITOXANTRONE HYDROCHLORIDE
     Indication: Acute myeloid leukaemia
     Dosage: 6 MG/M2, QD (FROM DAY 1 TO DAY 6; SALVAGE CHEMOTHERAPY)
     Route: 065
  10. CYTARABINE [Suspect]
     Active Substance: CYTARABINE
     Indication: Acute myeloid leukaemia
     Dosage: 1 G/M2, QD (INTERMEDIATE DOSE FROM DAY 1 TO DAY 6; SALVAGE CHEMOTHERAPY)
     Route: 065
  11. ETOPOSIDE [Suspect]
     Active Substance: ETOPOSIDE
     Indication: Acute myeloid leukaemia
     Dosage: 80 MG/M2, QD (SALVAGE CHEMOTHERAPY; FROM DAY 1 TO DAY 6)
     Route: 065
  12. HYDROXYUREA [Suspect]
     Active Substance: HYDROXYUREA
     Indication: Sickle cell disease
     Dosage: 1000 MG, QD
     Route: 065

REACTIONS (9)
  - Pneumonia klebsiella [Unknown]
  - Septic shock [Unknown]
  - Hepatosplenic candidiasis [Unknown]
  - Bronchopulmonary aspergillosis [Unknown]
  - Posterior reversible encephalopathy syndrome [Unknown]
  - Pericarditis [Unknown]
  - Cellulitis [Unknown]
  - Myelodysplastic syndrome [Unknown]
  - Acute myeloid leukaemia [Unknown]
